FAERS Safety Report 20026661 (Version 1)
Quarter: 2021Q4

REPORT INFORMATION
  Report Type: Spontaneous
  Country: US (occurrence: US)
  Receive Date: 20211102
  Receipt Date: 20211102
  Transmission Date: 20220304
  Serious: Yes (Other)
  Sender: FDA-Public Use
  Company Number: US-UCBSA-2021050898

PATIENT
  Age: 21 Year
  Sex: Female

DRUGS (6)
  1. KEPPRA [Suspect]
     Active Substance: LEVETIRACETAM
     Indication: Seizure
     Dosage: UNK
  2. LORAZEPAM [Suspect]
     Active Substance: LORAZEPAM
     Indication: Generalised tonic-clonic seizure
     Dosage: 2 MILLIGRAM
  3. PHENOBARBITAL [Suspect]
     Active Substance: PHENOBARBITAL
     Indication: Seizure
     Dosage: UNK
  4. VALPROATE [Suspect]
     Active Substance: VALPROIC ACID
     Indication: Seizure
     Dosage: UNK
  5. FENTANYL [Suspect]
     Active Substance: FENTANYL
     Indication: Seizure
     Dosage: UNK
  6. PROPOFOL [Suspect]
     Active Substance: PROPOFOL
     Indication: Seizure
     Dosage: UNK

REACTIONS (5)
  - Seizure [Recovered/Resolved]
  - Haemodynamic instability [Recovered/Resolved]
  - Ventricular tachycardia [Unknown]
  - Cardioversion [Unknown]
  - Multiple-drug resistance [Unknown]
